FAERS Safety Report 8361827 (Version 4)
Quarter: 2013Q3

REPORT INFORMATION
  Report Type: Report from Study
  Country: BE (occurrence: BE)
  Receive Date: 20120130
  Receipt Date: 20130927
  Transmission Date: 20140515
  Serious: Yes (Hospitalization)
  Sender: FDA-Public Use
  Company Number: BE-ASTRAZENECA-2011SE70175

PATIENT
  Age: 23295 Day
  Sex: Male

DRUGS (9)
  1. AZD6140 [Suspect]
     Indication: CORONARY ARTERY DISEASE
     Route: 048
     Dates: start: 20110909, end: 20111102
  2. SIMVASTATIN [Concomitant]
     Indication: HYPERCHOLESTEROLAEMIA
     Route: 048
     Dates: end: 20111107
  3. TILDIEM R [Concomitant]
     Indication: HYPERTENSION
     Route: 048
     Dates: end: 20111107
  4. TILDIEM R [Concomitant]
     Indication: HYPERTENSION
     Route: 048
     Dates: start: 20111112
  5. LISINOPRIL [Concomitant]
     Indication: HYPERTENSION
     Dosage: STARTED } 1 MONTH PRIOR TO STUDY START
     Route: 048
     Dates: end: 20111107
  6. LISINOPRIL [Concomitant]
     Indication: HYPERTENSION
     Route: 048
     Dates: start: 20111214
  7. ASA [Concomitant]
     Route: 048
     Dates: end: 20111028
  8. ASA [Concomitant]
     Route: 048
     Dates: start: 20111214, end: 20120211
  9. ASA [Concomitant]
     Route: 048
     Dates: start: 20120222

REACTIONS (1)
  - Transitional cell carcinoma [Recovered/Resolved]
